FAERS Safety Report 20889741 (Version 1)
Quarter: 2022Q2

REPORT INFORMATION
  Report Type: Spontaneous
  Country: US (occurrence: US)
  Receive Date: 20220530
  Receipt Date: 20220530
  Transmission Date: 20220720
  Serious: No
  Sender: FDA-Public Use
  Company Number: US-009507513-2205USA008174

PATIENT
  Sex: Male
  Weight: 133.79 kg

DRUGS (2)
  1. KEYTRUDA [Suspect]
     Active Substance: PEMBROLIZUMAB
     Dosage: UNK
  2. LENVATINIB MESYLATE [Suspect]
     Active Substance: LENVATINIB MESYLATE
     Indication: Renal cancer
     Dosage: 20 MG (2X10 MG), DAILY
     Route: 048
     Dates: start: 20220511

REACTIONS (2)
  - Blood pressure increased [Unknown]
  - Constipation [Unknown]
